FAERS Safety Report 9157059 (Version 2)
Quarter: 2013Q2

REPORT INFORMATION
  Report Type: Spontaneous
  Country: US (occurrence: US)
  Receive Date: 20130312
  Receipt Date: 20130513
  Transmission Date: 20140414
  Serious: No
  Sender: FDA-Public Use
  Company Number: US-TEVA-391346USA

PATIENT
  Age: 45 Year
  Sex: Female
  Weight: 48.58 kg

DRUGS (3)
  1. PLAN B ONE-STEP [Suspect]
     Indication: POST COITAL CONTRACEPTION
     Dosage: 1.5 MILLIGRAM DAILY;
     Route: 048
     Dates: start: 20130303, end: 20130303
  2. TESTOSTERONE [Concomitant]
     Indication: BLOOD TESTOSTERONE DECREASED
  3. TESTOSTERONE [Concomitant]
     Indication: ASTHENIA

REACTIONS (1)
  - Fatigue [Recovered/Resolved]
